FAERS Safety Report 26152828 (Version 2)
Quarter: 2025Q4

REPORT INFORMATION
  Report Type: Report from Study
  Country: CN (occurrence: CN)
  Receive Date: 20251214
  Receipt Date: 20251215
  Transmission Date: 20260118
  Serious: Yes (Death, Life-Threatening, Other)
  Sender: ABBVIE
  Company Number: CN-PFIZER INC-PV202500141495

PATIENT
  Age: 62 Year
  Sex: Male

DRUGS (13)
  1. AVIBACTAM SODIUM\CEFTAZIDIME [Suspect]
     Active Substance: AVIBACTAM SODIUM\CEFTAZIDIME
     Indication: Anti-infective therapy
     Dosage: 2.5 G, 3X/DAY (Q8H)
     Route: 041
     Dates: start: 20251023
  2. TEICOPLANIN [Concomitant]
     Active Substance: TEICOPLANIN
     Indication: Infection
     Dosage: UNK
  3. PIPERACILLIN\SULBACTAM [Concomitant]
     Active Substance: PIPERACILLIN\SULBACTAM
     Indication: Anti-infective therapy
     Dosage: UNK
     Dates: start: 20251104
  4. LINEZOLID [Concomitant]
     Active Substance: LINEZOLID
     Indication: Infection
     Dosage: UNK
  5. CASPOFUNGIN [Concomitant]
     Active Substance: CASPOFUNGIN
     Indication: Infection
     Dosage: UNK
     Dates: start: 20251023
  6. CASPOFUNGIN [Concomitant]
     Active Substance: CASPOFUNGIN
     Indication: Infection
     Dosage: UNK
     Dates: start: 20251104
  7. CASPOFUNGIN [Concomitant]
     Active Substance: CASPOFUNGIN
     Indication: Infection
     Dosage: UNK
     Dates: start: 20251104
  8. CASPOFUNGIN [Concomitant]
     Active Substance: CASPOFUNGIN
     Indication: Infection
     Dosage: UNK
     Dates: start: 20251023
  9. AZTREONAM [Concomitant]
     Active Substance: AZTREONAM
     Indication: Infection
     Dosage: UNK
     Dates: start: 20251023
  10. AZTREONAM [Concomitant]
     Active Substance: AZTREONAM
     Indication: Infection
     Dosage: UNK
     Dates: start: 20251023
  11. AMPHOTERICIN B [Concomitant]
     Active Substance: AMPHOTERICIN B
     Indication: Infection
     Dosage: UNK
     Dates: start: 20251104
  12. AMPHOTERICIN B [Concomitant]
     Active Substance: AMPHOTERICIN B
     Indication: Infection
     Dosage: UNK
     Dates: start: 20251023
  13. TIGECYCLINE [Concomitant]
     Active Substance: TIGECYCLINE
     Indication: Infection
     Dosage: UNK

REACTIONS (6)
  - Death [Fatal]
  - Cardio-respiratory arrest [Unknown]
  - Circulatory collapse [Unknown]
  - Brain natriuretic peptide increased [Unknown]
  - Anuria [Unknown]
  - Blood creatinine increased [Unknown]

NARRATIVE: CASE EVENT DATE: 20251101
